FAERS Safety Report 26200910 (Version 1)
Quarter: 2025Q4

REPORT INFORMATION
  Report Type: Spontaneous
  Country: EU (occurrence: EU)
  Receive Date: 20251226
  Receipt Date: 20251226
  Transmission Date: 20260117
  Serious: Yes (Death)
  Sender: ACCORD
  Company Number: None

PATIENT
  Age: 81 Year
  Sex: Female
  Weight: 77 kg

DRUGS (13)
  1. ZOLEDRONIC ACID [Suspect]
     Active Substance: ZOLEDRONIC ACID
     Indication: Osteoporosis prophylaxis
     Dosage: SOLUTION FOR INFUSION 0.05 MG/ML, 1X PER DAY 5MG
     Dates: start: 20251030
  2. METFORMIN [Concomitant]
     Active Substance: METFORMIN HYDROCHLORIDE
     Dosage: TABLET, 500 MG (MILLIGRAM)
  3. TOLBUTAMIDE [Concomitant]
     Active Substance: TOLBUTAMIDE
     Dosage: TABLET, 500 MG (MILLIGRAM)
  4. DAPAGLIFLOZIN [Concomitant]
     Active Substance: DAPAGLIFLOZIN
     Dosage: TABLET, 10 MG (MILLIGRAM)
  5. SPIRONOLACTONE [Concomitant]
     Active Substance: SPIRONOLACTONE
     Dosage: TABLET, 50 MG (MILLIGRAM)
  6. ATENOLOL [Concomitant]
     Active Substance: ATENOLOL
     Dosage: TABLET, 100 MG (MILLIGRAM)
  7. BARNIDIPINE [Concomitant]
     Active Substance: BARNIDIPINE
     Dosage: MODIFIED-RELEASE CAPSULE, 10 MG
  8. LISINOPRIL [Concomitant]
     Active Substance: LISINOPRIL
     Dosage: TABLET, 20 MG (MILLIGRAM)
  9. LEVOTHYROXINE [Concomitant]
     Active Substance: LEVOTHYROXINE
     Dosage: TABLET,  100 UG
  10. FERROUS FUMARATE [Concomitant]
     Active Substance: FERROUS FUMARATE
     Dosage: TABLET, 200 MG (MILLIGRAM)
  11. INSULIN GLARGINE [Concomitant]
     Active Substance: INSULIN GLARGINE
     Dosage: 100 U/ML SOLUTION FOR INJECTION
  12. DEXTROSE [Concomitant]
     Active Substance: DEXTROSE MONOHYDRATE
     Dosage: SOLUTION FOR INFUSION 50 MG/ML
  13. CALCIUM CARBONATE\CHOLECALCIFEROL [Concomitant]
     Active Substance: CALCIUM CARBONATE\CHOLECALCIFEROL
     Dosage: CHEWABLE TABLET, 1.25 G

REACTIONS (2)
  - Bradycardia [Fatal]
  - Hypotension [Fatal]
